FAERS Safety Report 7712333-1 (Version None)
Quarter: 2011Q3

REPORT INFORMATION
  Report Type: 
  Country: None (occurrence: None)
  Receive Date: 20110826
  Receipt Date: 20110818
  Transmission Date: 20111222
  Serious: Yes (Hospitalization)
  Sender: FDA-Public Use
  Company Number: JP-ROCHE-738906

PATIENT
  Sex: Male
  Weight: 58.5 kg

DRUGS (27)
  1. OXALIPLATIN [Suspect]
     Route: 041
     Dates: start: 20100721, end: 20100721
  2. HIRUDOID [Concomitant]
     Dosage: DOSAGE IS UNCERTAIN. DOSE FORM: OINTMENT AND CREAM.
     Route: 003
     Dates: start: 20100625, end: 20101019
  3. BEVACIZUMAB [Suspect]
     Route: 041
     Dates: start: 20100811, end: 20100811
  4. BEVACIZUMAB [Suspect]
     Route: 041
     Dates: start: 20100922, end: 20100922
  5. NAUZELIN [Concomitant]
     Dosage: AUTOREGULATION IN POSTTREATMENT.7 DAYS.FORM: PERORAL AGENT.
     Route: 048
     Dates: start: 20100626, end: 20100929
  6. FAMOTIDINE [Concomitant]
     Route: 048
     Dates: start: 20100625
  7. DECADRON [Concomitant]
     Dosage: ONLY ON THE FIRST.
     Route: 042
     Dates: start: 20100625, end: 20100922
  8. CAPECITABINE [Suspect]
     Dosage: XELODA 300(CAPECITABINE), NOTE: IT IS ONE ADMINISTERING WEEKLY HOLIDAY MEDICINE FOR TWO WEEKS.
     Route: 048
     Dates: start: 20100702, end: 20100709
  9. CAPECITABINE [Suspect]
     Dosage: XELODA 300(CAPECITABINE), NOTE: IT IS ONE ADMINISTERING WEEKLY HOLIDAY MEDICINE FOR TWO WEEKS.
     Route: 048
     Dates: start: 20100721, end: 20100804
  10. KYTRIL [Concomitant]
     Dosage: ONLY ON THE FIRST.
     Route: 048
     Dates: start: 20100626, end: 20100923
  11. DECADRON [Concomitant]
     Dosage: ONLY ON THE FIRST.
     Route: 048
     Dates: start: 20100626, end: 20100923
  12. CHLOR-TRIMETON [Concomitant]
     Dosage: ONLY ON THE FIRST.
     Route: 042
     Dates: start: 20100625, end: 20100922
  13. CAPECITABINE [Suspect]
     Dosage: XELODA 300(CAPECITABINE), NOTE: IT IS ONE ADMINISTERING WEEKLY HOLIDAY MEDICINE FOR TWO WEEKS.
     Route: 048
     Dates: start: 20100811, end: 20100825
  14. BEVACIZUMAB [Suspect]
     Route: 041
     Dates: start: 20100721, end: 20100721
  15. BEVACIZUMAB [Suspect]
     Route: 041
     Dates: start: 20100901, end: 20100901
  16. OXALIPLATIN [Suspect]
     Indication: RECTAL CANCER
     Route: 041
     Dates: start: 20100625, end: 20100625
  17. EMEND [Concomitant]
     Dosage: ONLY ON THE FIRST.
     Route: 048
     Dates: start: 20100625, end: 20100922
  18. EMEND [Concomitant]
     Dosage: POST TREATMENT DAY 2 AND 3.
     Route: 048
     Dates: start: 20100626, end: 20100924
  19. OXALIPLATIN [Suspect]
     Route: 041
     Dates: start: 20100922, end: 20100922
  20. CAPECITABINE [Suspect]
     Dosage: XELODA 300(CAPECITABINE), NOTE: IT IS ONE ADMINISTERING WEEKLY HOLIDAY MEDICINE FOR TWO WEEKS.
     Route: 048
     Dates: start: 20100901, end: 20100915
  21. CAPECITABINE [Suspect]
     Indication: RECTAL CANCER
     Dosage: XELODA 300(CAPECITABINE), NOTE: IT IS ONE ADMINISTERING WEEKLY HOLIDAY MEDICINE FOR TWO WEEKS.
     Route: 048
     Dates: start: 20100625, end: 20100628
  22. CAPECITABINE [Suspect]
     Dosage: XELODA 300(CAPECITABINE), NOTE: IT IS ONE ADMINISTERING WEEKLY HOLIDAY MEDICINE FOR TWO WEEKS.
     Route: 048
     Dates: start: 20100922, end: 20101006
  23. BEVACIZUMAB [Suspect]
     Indication: RECTAL CANCER
     Route: 041
     Dates: start: 20100625, end: 20100625
  24. OXALIPLATIN [Suspect]
     Route: 041
     Dates: start: 20100811, end: 20100811
  25. OXALIPLATIN [Suspect]
     Route: 041
     Dates: start: 20100901, end: 20100901
  26. WHITE PETROLATUM [Concomitant]
     Dosage: DOSAGE IS UNCERTAIN. DOSE FORM: OINTMENT AND CREAM.
     Route: 003
     Dates: start: 20100625, end: 20101019
  27. KYTRIL [Concomitant]
     Dosage: ONLY ON THE FIRST.
     Route: 042
     Dates: start: 20100625, end: 20100922

REACTIONS (5)
  - HAEMOLYTIC ANAEMIA [None]
  - PALMAR-PLANTAR ERYTHRODYSAESTHESIA SYNDROME [None]
  - PYREXIA [None]
  - PLATELET COUNT DECREASED [None]
  - NEUROPATHY PERIPHERAL [None]
